FAERS Safety Report 19013182 (Version 1)
Quarter: 2021Q1

REPORT INFORMATION
  Report Type: Spontaneous
  Country: FR (occurrence: FR)
  Receive Date: 20210316
  Receipt Date: 20210316
  Transmission Date: 20210420
  Serious: Yes (Hospitalization)
  Sender: FDA-Public Use
  Company Number: FR-ORION CORPORATION ORION PHARMA-21_00013590

PATIENT
  Age: 66 Year
  Sex: Female
  Weight: 52 kg

DRUGS (2)
  1. CORTANCYL [Suspect]
     Active Substance: PREDNISONE
     Indication: POLYMYOSITIS
     Route: 048
     Dates: start: 201911
  2. METHOTREXATE (TRADE NAME UNKNOWN) [Suspect]
     Active Substance: METHOTREXATE
     Indication: POLYMYOSITIS
     Route: 048
     Dates: start: 201911, end: 202009

REACTIONS (2)
  - Mixed anxiety and depressive disorder [Recovering/Resolving]
  - Product use in unapproved indication [Unknown]

NARRATIVE: CASE EVENT DATE: 201911
